FAERS Safety Report 19211306 (Version 1)
Quarter: 2021Q2

REPORT INFORMATION
  Report Type: Spontaneous
  Country: FR (occurrence: FR)
  Receive Date: 20210501
  Receipt Date: 20210501
  Transmission Date: 20210717
  Serious: Yes (Hospitalization)
  Sender: FDA-Public Use
  Company Number: FR-ACCORD-223998

PATIENT
  Age: 63 Year
  Sex: Female
  Weight: 75 kg

DRUGS (3)
  1. CARBOPLATIN ACCORD [Suspect]
     Active Substance: CARBOPLATIN
     Indication: INVASIVE DUCTAL BREAST CARCINOMA
     Dosage: 10 MG/ML
     Route: 041
     Dates: start: 20201229, end: 20201229
  2. PACLITAXEL KABI [Suspect]
     Active Substance: PACLITAXEL
     Indication: INVASIVE DUCTAL BREAST CARCINOMA
     Dosage: 6 MG/ML
     Route: 041
     Dates: start: 20201229, end: 20201229
  3. HERCEPTIN [Suspect]
     Active Substance: TRASTUZUMAB
     Indication: INVASIVE DUCTAL BREAST CARCINOMA
     Route: 041
     Dates: start: 20201229, end: 20201229

REACTIONS (1)
  - Acute kidney injury [Recovering/Resolving]

NARRATIVE: CASE EVENT DATE: 20210104
